FAERS Safety Report 9792786 (Version 1)
Quarter: 2013Q4

REPORT INFORMATION
  Report Type: Spontaneous
  Country: US (occurrence: None)
  Receive Date: 20131231
  Receipt Date: 20131231
  Transmission Date: 20140711
  Serious: Yes (Other)
  Sender: FDA-Public Use
  Company Number: None

PATIENT
  Age: 61 Year
  Sex: Female
  Weight: 53.52 kg

DRUGS (1)
  1. AMOXICILLIN [Suspect]
     Indication: VIRAL INFECTION
     Route: 048
     Dates: start: 20131229

REACTIONS (7)
  - Pruritus generalised [None]
  - Dyspepsia [None]
  - Throat tightness [None]
  - Hypersensitivity [None]
  - Product quality issue [None]
  - Product substitution issue [None]
  - Infection [None]
